FAERS Safety Report 15108391 (Version 3)
Quarter: 2019Q1

REPORT INFORMATION
  Report Type: Spontaneous
  Country: CA (occurrence: CA)
  Receive Date: 20180705
  Receipt Date: 20190131
  Transmission Date: 20190417
  Serious: Yes (Disabling, Other)
  Sender: FDA-Public Use
  Company Number: CA-BIOVITRUM-2018CA0777

PATIENT
  Sex: Female

DRUGS (16)
  1. ORENCIA [Suspect]
     Active Substance: ABATACEPT
     Indication: PRODUCT USED FOR UNKNOWN INDICATION
     Dates: start: 2010
  2. FENTANYL. [Concomitant]
     Active Substance: FENTANYL
     Indication: RHEUMATOID ARTHRITIS
  3. ENBREL [Suspect]
     Active Substance: ETANERCEPT
     Indication: RHEUMATOID ARTHRITIS
     Route: 058
  4. METHOTREXATE SODIUM. [Suspect]
     Active Substance: METHOTREXATE SODIUM
     Route: 048
     Dates: start: 2016
  5. APO-LEFLUNOMIDE [Suspect]
     Active Substance: LEFLUNOMIDE
     Indication: PRODUCT USED FOR UNKNOWN INDICATION
     Dates: start: 1999, end: 1999
  6. METHOTREXATE. [Suspect]
     Active Substance: METHOTREXATE
     Route: 048
  7. ACTEMRA [Suspect]
     Active Substance: TOCILIZUMAB
     Indication: PRODUCT USED FOR UNKNOWN INDICATION
  8. METHOTREXATE. [Suspect]
     Active Substance: METHOTREXATE
     Indication: RHEUMATOID ARTHRITIS
  9. HUMIRA [Suspect]
     Active Substance: ADALIMUMAB
     Indication: PRODUCT USED FOR UNKNOWN INDICATION
     Route: 058
     Dates: start: 2009
  10. METHOTREXATE. [Suspect]
     Active Substance: METHOTREXATE
     Route: 048
  11. KINERET [Suspect]
     Active Substance: ANAKINRA
     Indication: PRODUCT USED FOR UNKNOWN INDICATION
     Dates: start: 1999
  12. METHOTREXATE SODIUM. [Suspect]
     Active Substance: METHOTREXATE SODIUM
     Indication: RHEUMATOID ARTHRITIS
     Route: 048
     Dates: start: 1999
  13. METHOTREXATE. [Suspect]
     Active Substance: METHOTREXATE
  14. RITUXAN [Concomitant]
     Active Substance: RITUXIMAB
     Dates: start: 2011
  15. REMICADE [Suspect]
     Active Substance: INFLIXIMAB
     Indication: PRODUCT USED FOR UNKNOWN INDICATION
     Route: 042
  16. FENTANYL. [Concomitant]
     Active Substance: FENTANYL
     Indication: PAIN

REACTIONS (14)
  - Sensitivity to weather change [Unknown]
  - Back pain [Unknown]
  - Rheumatoid arthritis [Unknown]
  - Drug ineffective [Unknown]
  - Dyspnoea [Unknown]
  - Infection [Unknown]
  - Liver function test increased [Unknown]
  - Joint swelling [Unknown]
  - Liver function test abnormal [Unknown]
  - Loss of personal independence in daily activities [Unknown]
  - Swelling [Unknown]
  - Drug effect decreased [Unknown]
  - Osteomyelitis [Unknown]
  - Musculoskeletal pain [Unknown]
